FAERS Safety Report 17258065 (Version 1)
Quarter: 2020Q1

REPORT INFORMATION
  Report Type: Spontaneous
  Country: DE (occurrence: DE)
  Receive Date: 20200110
  Receipt Date: 20200110
  Transmission Date: 20200409
  Serious: Yes (Hospitalization)
  Sender: FDA-Public Use
  Company Number: DE-PFIZER INC-2020008682

PATIENT
  Age: 80 Year
  Sex: Male

DRUGS (15)
  1. PREGABALIN. [Suspect]
     Active Substance: PREGABALIN
     Dosage: 150 MG, 2X/DAY, 1-0-1-0
  2. METFORMIN [Concomitant]
     Active Substance: METFORMIN HYDROCHLORIDE
     Dosage: 1000 MG, 2X/DAY, 1-0-1-0
  3. SALBUTAMOL [Concomitant]
     Active Substance: ALBUTEROL
     Dosage: 0.1 MG, 2-2-2-0
  4. PANTOPRAZOL [PANTOPRAZOLE] [Concomitant]
     Active Substance: PANTOPRAZOLE
     Dosage: 40 MG, 1X/DAY1-0-0-0
  5. ATORVASTATIN [Concomitant]
     Active Substance: ATORVASTATIN
     Dosage: 40 MG, 1X/DAY, 0-0-1-0
  6. EZETIMIBE. [Concomitant]
     Active Substance: EZETIMIBE
     Dosage: 10 MG, 1X/DAY, 1-0-0-0
  7. PREDNISOLONE. [Concomitant]
     Active Substance: PREDNISOLONE
     Dosage: 30 MG, 1X/DAY, 1-0-0-0
  8. TORASEMID [Concomitant]
     Active Substance: TORSEMIDE
     Dosage: 10 MG, 1X/DAY, 1-0-0-0
  9. ACETYLSALICYLIC ACID [Concomitant]
     Active Substance: ASPIRIN
     Dosage: 100 MG, 1X/DAY, 1-0-0-0
  10. MAGNESIUM [Concomitant]
     Active Substance: MAGNESIUM
     Dosage: 1 MMOL/G, 1-0-1-0
  11. EMPAGLIFLOZIN [Concomitant]
     Active Substance: EMPAGLIFLOZIN
     Dosage: 10 MG, 1X/DAY, 1-0-0-0
  12. RAMIPRIL. [Concomitant]
     Active Substance: RAMIPRIL
     Dosage: 2.5 MG, 2X/DAY (5 MG, 0.5-0-0.5-0)
  13. VITAMIN B12 [Concomitant]
     Active Substance: CYANOCOBALAMIN
     Dosage: NK MG / MONTH, 1X
  14. FOLIC ACID. [Concomitant]
     Active Substance: FOLIC ACID
     Dosage: 5 MG, 1X/DAY, 1-0-0-0
  15. TICAGRELOR. [Concomitant]
     Active Substance: TICAGRELOR
     Dosage: 90 MG, 2X/DAY, 1-0-1-0

REACTIONS (4)
  - Musculoskeletal pain [Unknown]
  - Fall [Unknown]
  - Gamma-glutamyltransferase increased [Unknown]
  - Haematoma [Unknown]

NARRATIVE: CASE EVENT DATE: 20191021
